FAERS Safety Report 15198511 (Version 1)
Quarter: 2018Q3

REPORT INFORMATION
  Report Type: Spontaneous
  Country: PK (occurrence: PK)
  Receive Date: 20180725
  Receipt Date: 20180725
  Transmission Date: 20181010
  Serious: Yes (Other)
  Sender: FDA-Public Use
  Company Number: PK-BAUSCH-BL-2018-020017

PATIENT
  Age: 77 Year
  Sex: Female

DRUGS (2)
  1. SOFOSBUVIR [Suspect]
     Active Substance: SOFOSBUVIR
     Indication: HEPATITIS C
     Dosage: FOR 24 WEEKS
     Route: 065
  2. RIBAVIRIN. [Suspect]
     Active Substance: RIBAVIRIN
     Indication: HEPATITIS C
     Dosage: WEIGHT?BASED RIBAVIRIN FOR 24 WEEKS
     Route: 065

REACTIONS (1)
  - Therapy non-responder [Recovered/Resolved]
